FAERS Safety Report 7400639-5 (Version None)
Quarter: 2011Q2

REPORT INFORMATION
  Report Type: 
  Country: None (occurrence: None)
  Receive Date: 20110407
  Receipt Date: 20110324
  Transmission Date: 20111010
  Serious: Yes (Other)
  Sender: FDA-Public Use
  Company Number: TW-JNJFOC-20110312063

PATIENT
  Age: 50 Year
  Sex: Male

DRUGS (2)
  1. REGAINE 2% GEL [Suspect]
     Indication: ALOPECIA
     Route: 061
  2. REGAINE 2% GEL [Suspect]
     Route: 061

REACTIONS (1)
  - DRUG HYPERSENSITIVITY [None]
